FAERS Safety Report 12390495 (Version 1)
Quarter: 2016Q2

REPORT INFORMATION
  Report Type: Spontaneous
  Country: CH (occurrence: CH)
  Receive Date: 20160520
  Receipt Date: 20160520
  Transmission Date: 20160815
  Serious: Yes (Other)
  Sender: FDA-Public Use
  Company Number: CH-JNJFOC-20160517295

PATIENT
  Age: 78 Year
  Sex: Female
  Weight: 73 kg

DRUGS (14)
  1. METOZOK [Concomitant]
     Route: 065
     Dates: start: 201411, end: 201502
  2. AMIODARONE [Concomitant]
     Active Substance: AMIODARONE
     Route: 065
  3. CONCOR [Concomitant]
     Active Substance: BISOPROLOL FUMARATE
     Route: 065
  4. SPIRICORT [Concomitant]
     Active Substance: PREDNISOLONE
     Route: 065
  5. XARELTO [Suspect]
     Active Substance: RIVAROXABAN
     Indication: CEREBROVASCULAR ACCIDENT PROPHYLAXIS
     Route: 048
     Dates: start: 20140807
  6. XARELTO [Suspect]
     Active Substance: RIVAROXABAN
     Indication: AORTIC ANEURYSM
     Route: 048
     Dates: start: 20140807
  7. SYMBICORT [Concomitant]
     Active Substance: BUDESONIDE\FORMOTEROL FUMARATE DIHYDRATE
     Route: 065
  8. TORASEMIDE [Concomitant]
     Active Substance: TORSEMIDE
     Route: 065
  9. AMLODIPINE [Concomitant]
     Active Substance: AMLODIPINE BESYLATE
     Route: 065
  10. VENTOLIN [Concomitant]
     Active Substance: ALBUTEROL SULFATE
     Route: 065
  11. POTASSIUM CHLORIDE. [Concomitant]
     Active Substance: POTASSIUM CHLORIDE
     Route: 065
  12. XARELTO [Suspect]
     Active Substance: RIVAROXABAN
     Indication: ATRIAL FIBRILLATION
     Route: 048
     Dates: start: 20140807
  13. ALAVERT ALLERGY [Concomitant]
     Active Substance: LORATADINE
     Route: 065
     Dates: start: 201407, end: 201410
  14. DILZEM [Concomitant]
     Active Substance: DILTIAZEM
     Route: 065

REACTIONS (8)
  - Cardiac failure [Unknown]
  - Oedema peripheral [Unknown]
  - Blood blister [Unknown]
  - Renal failure [Unknown]
  - Skin ulcer [Unknown]
  - Eczema [Unknown]
  - Pruritus [Unknown]
  - Limb discomfort [Unknown]

NARRATIVE: CASE EVENT DATE: 20141231
